FAERS Safety Report 25691068 (Version 1)
Quarter: 2025Q3

REPORT INFORMATION
  Report Type: Report from Study
  Country: US (occurrence: US)
  Receive Date: 20250818
  Receipt Date: 20250818
  Transmission Date: 20251021
  Serious: Yes (Hospitalization)
  Sender: ELI LILLY AND COMPANY
  Company Number: US-ELI_LILLY_AND_COMPANY-US202508008971

PATIENT
  Age: 59 Year
  Sex: Female

DRUGS (1)
  1. TIRZEPATIDE [Suspect]
     Active Substance: TIRZEPATIDE
     Indication: Product used for unknown indication
     Route: 058

REACTIONS (8)
  - Hypersensitivity [Recovered/Resolved]
  - Dysphonia [Unknown]
  - Paraesthesia oral [Unknown]
  - Soft tissue swelling [Unknown]
  - Swelling face [Unknown]
  - Pharyngeal swelling [Unknown]
  - Swollen tongue [Unknown]
  - Dehydration [Unknown]

NARRATIVE: CASE EVENT DATE: 20250725
